FAERS Safety Report 21178314 (Version 1)
Quarter: 2022Q3

REPORT INFORMATION
  Report Type: Spontaneous
  Country: US (occurrence: None)
  Receive Date: 20220804
  Receipt Date: 20220804
  Transmission Date: 20221026
  Serious: Yes (Hospitalization)
  Sender: FDA-Public Use
  Company Number: None

PATIENT
  Sex: Female

DRUGS (2)
  1. PIRFENIDONE [Suspect]
     Active Substance: PIRFENIDONE
     Indication: Idiopathic pulmonary fibrosis
     Dosage: 801MG THREE TIMES DAILY ORAL?
     Route: 048
     Dates: start: 202206
  2. PIRFENIDONE [Suspect]
     Active Substance: PIRFENIDONE
     Indication: Chronic obstructive pulmonary disease

REACTIONS (1)
  - Hospitalisation [None]
